FAERS Safety Report 21907311 (Version 2)
Quarter: 2025Q2

REPORT INFORMATION
  Report Type: Spontaneous
  Country: US (occurrence: US)
  Receive Date: 20230125
  Receipt Date: 20250429
  Transmission Date: 20250716
  Serious: No
  Sender: TEVA
  Company Number: US-TEVA-2023-US-2845464

PATIENT

DRUGS (1)
  1. ADDERALL [Suspect]
     Active Substance: AMPHETAMINE ASPARTATE\AMPHETAMINE SULFATE\DEXTROAMPHETAMINE SACCHARATE\DEXTROAMPHETAMINE SULFATE
     Indication: Attention deficit hyperactivity disorder
     Route: 065

REACTIONS (6)
  - Condition aggravated [Unknown]
  - Drug ineffective [Unknown]
  - Somnolence [Unknown]
  - Headache [Unknown]
  - Confusional state [Unknown]
  - Nausea [Unknown]
